FAERS Safety Report 7334879-0 (Version None)
Quarter: 2011Q1

REPORT INFORMATION
  Report Type: 
  Country: None (occurrence: None)
  Receive Date: 20110302
  Receipt Date: 20110302
  Transmission Date: 20110831
  Serious: Yes (Other)
  Sender: FDA-Public Use
  Company Number: None

PATIENT
  Age: 43 Year
  Sex: Female
  Weight: 87.0906 kg

DRUGS (1)
  1. DEXFERRUM [Suspect]
     Indication: IRON DEFICIENCY ANAEMIA
     Dosage: 25MG ONCE IV DRIP FIRST TEST DOSE
     Route: 041

REACTIONS (4)
  - DYSPNOEA [None]
  - INFUSION RELATED REACTION [None]
  - FLUSHING [None]
  - BACK PAIN [None]
